FAERS Safety Report 10498734 (Version 1)
Quarter: 2014Q4

REPORT INFORMATION
  Report Type: Spontaneous
  Country: FR (occurrence: FR)
  Receive Date: 20141006
  Receipt Date: 20141006
  Transmission Date: 20150528
  Serious: Yes (Hospitalization, Other)
  Sender: FDA-Public Use
  Company Number: FR-PFIZER INC-2014268576

PATIENT
  Age: 63 Year
  Sex: Male

DRUGS (11)
  1. LYRICA [Suspect]
     Active Substance: PREGABALIN
     Indication: NEURALGIA
     Dosage: 100 MG, 2X/DAY (1DF TWICE DAILY)
     Route: 048
     Dates: end: 20140910
  2. VANCOMYCIN HYDROCHLORIDE. [Concomitant]
     Active Substance: VANCOMYCIN HYDROCHLORIDE
     Dosage: UNK
  3. LOPERAMIDE HYDROCHLORIDE. [Concomitant]
     Active Substance: LOPERAMIDE HYDROCHLORIDE
     Dosage: UNK
  4. QUESTRAN [Concomitant]
     Active Substance: CHOLESTYRAMINE
     Dosage: UNK
  5. SMECTA [Concomitant]
     Active Substance: MONTMORILLONITE
     Dosage: UNK
  6. LYRICA [Suspect]
     Active Substance: PREGABALIN
     Dosage: 75 MG, DAILY
     Route: 048
     Dates: start: 20140911, end: 20140912
  7. FRAGMIN [Concomitant]
     Active Substance: DALTEPARIN SODIUM
     Dosage: 5000 IU ANTI XA/0.2 ML
  8. XATRAL - SLOW RELEASE [Concomitant]
     Active Substance: ALFUZOSIN
     Dosage: 10 MG, UNK
  9. TIORFAN [Concomitant]
     Active Substance: RACECADOTRIL
     Dosage: UNK
  10. DICODIN [Concomitant]
     Active Substance: DIHYDROCODEINE
     Dosage: 60 MG, UNK
  11. MOPRAL [Concomitant]
     Active Substance: OMEPRAZOLE SODIUM
     Dosage: UNK

REACTIONS (8)
  - Renal failure [Unknown]
  - Sepsis [Unknown]
  - Myoclonus [Recovered/Resolved]
  - Malaise [Unknown]
  - Overdose [Unknown]
  - Hypotension [Unknown]
  - Tremor [Unknown]
  - Clonus [Unknown]

NARRATIVE: CASE EVENT DATE: 20140904
